FAERS Safety Report 7757391-3 (Version None)
Quarter: 2011Q3

REPORT INFORMATION
  Report Type: 
  Country: None (occurrence: None)
  Receive Date: 20110916
  Receipt Date: 20110906
  Transmission Date: 20111222
  Serious: Yes (Hospitalization)
  Sender: FDA-Public Use
  Company Number: IL-ACTELION-A-CH2011-53615

PATIENT
  Age: 55 Year
  Sex: Male

DRUGS (7)
  1. REPAGLINIDE [Concomitant]
  2. RIFAXIMIN [Concomitant]
  3. PROPRANOLOL [Concomitant]
  4. LOSARTAN POTASSIUM [Concomitant]
  5. OMEPRAZOLE [Concomitant]
  6. FUROSEMIDE [Concomitant]
  7. TRACLEER [Suspect]
     Indication: PULMONARY ARTERIAL HYPERTENSION
     Dosage: 125 MG, BID
     Route: 048
     Dates: start: 20110801

REACTIONS (2)
  - TREMOR [None]
  - DYSPNOEA [None]
